FAERS Safety Report 11055564 (Version 1)
Quarter: 2015Q2

REPORT INFORMATION
  Report Type: Spontaneous
  Country: US (occurrence: US)
  Receive Date: 20150422
  Receipt Date: 20150422
  Transmission Date: 20150821
  Serious: No
  Sender: FDA-Public Use
  Company Number: US-PFIZER INC-2015132971

PATIENT
  Age: 31 Year
  Sex: Male
  Weight: 79 kg

DRUGS (1)
  1. VIAGRA [Suspect]
     Active Substance: SILDENAFIL CITRATE
     Dosage: UNK
     Dates: start: 20150406, end: 20150407

REACTIONS (3)
  - Penis disorder [Unknown]
  - Painful erection [Recovered/Resolved]
  - Penile vascular disorder [Unknown]

NARRATIVE: CASE EVENT DATE: 20150406
